FAERS Safety Report 7468357-5 (Version None)
Quarter: 2011Q2

REPORT INFORMATION
  Report Type: 
  Country: None (occurrence: None)
  Receive Date: 20110509
  Receipt Date: 20091109
  Transmission Date: 20111010
  Serious: Yes (Other)
  Sender: FDA-Public Use
  Company Number: US-BAYER-200938655NA

PATIENT
  Age: 61 Year
  Sex: Male
  Weight: 83 kg

DRUGS (6)
  1. TRASYLOL [Suspect]
     Indication: AORTIC VALVE REPLACEMENT
     Dosage: UNK
     Route: 042
     Dates: start: 20070102
  2. LORA TAB [Concomitant]
  3. LIPITOR [Concomitant]
     Dosage: 20 MG, QD
     Route: 048
  4. TARKA [Concomitant]
     Dosage: 1 MG, BID
     Route: 048
  5. PREDNISONE TAB [Concomitant]
     Dosage: 4 MG, QD
     Route: 048
  6. TRASYLOL [Suspect]
     Indication: CORONARY ARTERY BYPASS

REACTIONS (13)
  - RENAL FAILURE [None]
  - ANXIETY [None]
  - PAIN [None]
  - CEREBROVASCULAR ACCIDENT [None]
  - DYSPNOEA [None]
  - DEPRESSION [None]
  - INJURY [None]
  - UNEVALUABLE EVENT [None]
  - AMNESIA [None]
  - FEAR [None]
  - ANHEDONIA [None]
  - ERECTILE DYSFUNCTION [None]
  - DYSURIA [None]
